FAERS Safety Report 5699966-1 (Version None)
Quarter: 2008Q2

REPORT INFORMATION
  Report Type: 
  Country: None (occurrence: None)
  Receive Date: 20080410
  Receipt Date: 20080403
  Transmission Date: 20081010
  Serious: Yes (Hospitalization, Other)
  Sender: FDA-Public Use
  Company Number: AU-AVENTIS-200810920GDDC

PATIENT
  Age: 77 Year
  Sex: Male

DRUGS (11)
  1. LANTUS [Suspect]
     Route: 058
     Dates: start: 20071114
  2. HUMALOG [Concomitant]
  3. CAPTOPRIL [Concomitant]
  4. DIAFORMIN [Concomitant]
  5. LIPITOR [Concomitant]
  6. MINIPRESS [Concomitant]
  7. MOBIC [Concomitant]
  8. PANAMAX [Concomitant]
  9. SERETIDE [Concomitant]
     Dosage: DOSE: 250/25
  10. SOLPRIN                            /00002702/ [Concomitant]
     Dosage: DOSE QUANTITY: 0.5
  11. SPIRIVA [Concomitant]

REACTIONS (2)
  - BLOOD GLUCOSE INCREASED [None]
  - OESOPHAGEAL OBSTRUCTION [None]
